FAERS Safety Report 10269532 (Version 2)
Quarter: 2014Q3

REPORT INFORMATION
  Report Type: Report from Study
  Country: US (occurrence: US)
  Receive Date: 20140701
  Receipt Date: 20140701
  Transmission Date: 20150326
  Serious: Yes (Death, Hospitalization)
  Sender: FDA-Public Use
  Company Number: US-BRISTOL-MYERS SQUIBB COMPANY-15331820

PATIENT
  Age: 65 Year
  Sex: Female
  Weight: 85.28 kg

DRUGS (25)
  1. DIOVAN [Concomitant]
     Active Substance: VALSARTAN
     Route: 048
  2. TEMODAR [Concomitant]
     Active Substance: TEMOZOLOMIDE
     Route: 048
  3. BYSTOLIC [Concomitant]
     Active Substance: NEBIVOLOL HYDROCHLORIDE
     Dosage: 1 TABS ONCE DAILY
     Route: 048
  4. GLUCOPHAGE [Concomitant]
     Active Substance: METFORMIN HYDROCHLORIDE
     Dosage: 2 TAB A DAY
     Route: 048
  5. TRIAMCINOLONE ACETONIDE CREAM [Concomitant]
  6. NEURONTIN [Concomitant]
     Active Substance: GABAPENTIN
     Dosage: 2 CAPS A DAY
     Route: 048
  7. OYSTER SHELL CALCIUM WITH VITAMIN D [Concomitant]
     Active Substance: CALCIUM\CHOLECALCIFEROL
  8. PRILOSEC [Concomitant]
     Active Substance: OMEPRAZOLE MAGNESIUM
     Dosage: DELAYED RELEASE CAPS
     Route: 048
  9. ZOCOR [Concomitant]
     Active Substance: SIMVASTATIN
     Route: 048
  10. SYNTHROID [Concomitant]
     Active Substance: LEVOTHYROXINE SODIUM
     Dosage: BY MOUTH BEFORE BRKFAST,TABS
     Route: 048
  11. INSULIN [Concomitant]
     Active Substance: INSULIN NOS
  12. SPIRONOLACTONE. [Concomitant]
     Active Substance: SPIRONOLACTONE
  13. ALPHAGAN P [Concomitant]
     Active Substance: BRIMONIDINE TARTRATE
     Dosage: 1 DF:0.1 PERCENT DROPS?1 DROP TWICE A DAY?ALPHAGAN  P
     Route: 047
  14. FOSAMAX [Concomitant]
     Active Substance: ALENDRONATE SODIUM
  15. FOSAMAX [Concomitant]
     Active Substance: ALENDRONATE SODIUM
     Dosage: 1 TAB ONCE DAILY,10MG,PO,TABS
     Route: 048
  16. DIOVAN HCT [Concomitant]
     Active Substance: HYDROCHLOROTHIAZIDE\VALSARTAN
     Dosage: 1 DF:320-12.5MG
     Route: 048
  17. TYLENOL [Concomitant]
     Active Substance: ACETAMINOPHEN
     Route: 048
  18. IPILIMUMAB [Suspect]
     Active Substance: IPILIMUMAB
     Indication: MALIGNANT MELANOMA
     Dosage: INTERR ON 21SEP2010
     Dates: start: 20100811
  19. BABY ASPIRIN [Concomitant]
     Active Substance: ASPIRIN
     Dosage: CHEWABLE TABS
     Route: 048
  20. LEVOXYL [Concomitant]
     Active Substance: LEVOTHYROXINE SODIUM
     Dosage: 1 TAB A DAY
     Route: 048
  21. TYLENOL EXTRA STRENGTH [Concomitant]
     Active Substance: ACETAMINOPHEN
     Indication: PAIN
     Dosage: 2 TAB PO Q6H AS NEEDED
     Route: 048
  22. NEURONTIN [Concomitant]
     Active Substance: GABAPENTIN
     Route: 048
  23. XANAX [Concomitant]
     Active Substance: ALPRAZOLAM
     Dosage: TABS
     Route: 048
  24. ACTOS [Concomitant]
     Active Substance: PIOGLITAZONE HYDROCHLORIDE
     Dosage: 1 TABS ONCE DAILY
     Route: 048
  25. NORVASC [Concomitant]
     Active Substance: AMLODIPINE BESYLATE

REACTIONS (2)
  - Death [Fatal]
  - Asthenia [Recovered/Resolved with Sequelae]

NARRATIVE: CASE EVENT DATE: 20101007
